FAERS Safety Report 9879034 (Version 1)
Quarter: 2014Q1

REPORT INFORMATION
  Report Type: Spontaneous
  Country: FR (occurrence: FR)
  Receive Date: 20140206
  Receipt Date: 20140206
  Transmission Date: 20141002
  Serious: Yes (Other)
  Sender: FDA-Public Use
  Company Number: FR-PFIZER INC-2014031894

PATIENT
  Age: 83 Year
  Sex: Female

DRUGS (6)
  1. TAHOR [Suspect]
     Dosage: 80 MG, 1X/DAY
     Route: 048
     Dates: start: 20130626
  2. PAROXETINE [Concomitant]
     Dosage: 20 MG, 1X/DAY
     Route: 048
     Dates: end: 20130712
  3. DAFALGAN [Concomitant]
     Dosage: 1 G, 4X/DAY (500 MG CAPSULE)
     Dates: end: 20130711
  4. LASILIX FAIBLE [Concomitant]
     Dosage: 20 MG, 1X/DAY
     Route: 048
  5. ATENOLOL [Concomitant]
     Dosage: 50 MG, 1X/DAY
     Route: 048
  6. KARDEGIC [Concomitant]
     Dosage: 160 MG, 1X/DAY
     Route: 048
     Dates: start: 20130626

REACTIONS (1)
  - Gout [Unknown]
